FAERS Safety Report 7617991-8 (Version None)
Quarter: 2011Q3

REPORT INFORMATION
  Report Type: 
  Country: None (occurrence: None)
  Receive Date: 20110718
  Receipt Date: 20110712
  Transmission Date: 20111222
  Serious: Yes (Hospitalization)
  Sender: FDA-Public Use
  Company Number: US-SANOFI-AVENTIS-2011SA041473

PATIENT
  Age: 70 Year
  Sex: Female
  Weight: 122 kg

DRUGS (15)
  1. ASPIRIN [Suspect]
     Route: 048
     Dates: start: 20110516
  2. NEURONTIN [Concomitant]
  3. ULTRAM [Concomitant]
  4. PROVENTIL [Concomitant]
     Indication: CHRONIC OBSTRUCTIVE PULMONARY DISEASE
     Dosage: 2 PUFFS DAILY PRN
  5. VICODIN [Concomitant]
  6. ALBUTEROL SULFATE AUTOHALER [Concomitant]
  7. XANAX [Concomitant]
     Indication: ANXIETY
  8. SPIRIVA [Concomitant]
     Indication: CHRONIC OBSTRUCTIVE PULMONARY DISEASE
  9. PLAVIX [Suspect]
     Route: 048
     Dates: start: 20110516
  10. ZESTRIL [Concomitant]
     Indication: HYPERTENSION
  11. TIAZAC [Concomitant]
     Indication: HYPERTENSION
  12. DEMADEX [Concomitant]
     Indication: HYPERTENSION
  13. POTASSIUM CHLORIDE [Concomitant]
  14. NORCO [Concomitant]
     Dosage: 5/500MG TID
  15. TOPROL-XL [Concomitant]
     Indication: HYPERTENSION

REACTIONS (3)
  - ABDOMINAL PAIN [None]
  - COLITIS [None]
  - LARGE INTESTINE PERFORATION [None]
